FAERS Safety Report 13350052 (Version 1)
Quarter: 2017Q1

REPORT INFORMATION
  Report Type: Report from Study
  Country: GB (occurrence: GB)
  Receive Date: 20170320
  Receipt Date: 20170320
  Transmission Date: 20170429
  Serious: Yes (Death)
  Sender: FDA-Public Use
  Company Number: GB-PFIZER INC-2017113652

PATIENT

DRUGS (4)
  1. CAPECITABINE. [Suspect]
     Active Substance: CAPECITABINE
     Indication: OESOPHAGEAL ADENOCARCINOMA
     Dosage: 1250 MG/M2, ON DAYS 1-21
     Route: 048
  2. CISPLATIN. [Suspect]
     Active Substance: CISPLATIN
     Indication: OESOPHAGEAL ADENOCARCINOMA
     Dosage: 60 MG/M2, ON DAY 1, EVERY 21 DAYS
     Route: 042
  3. BEVACIZUMAB [Suspect]
     Active Substance: BEVACIZUMAB
     Indication: OESOPHAGEAL ADENOCARCINOMA
     Dosage: 7.5 MG/KG, ON DAY 1  EVERY 21 DAYS
     Route: 041
  4. EPIRUBICIN HCL [Suspect]
     Active Substance: EPIRUBICIN HYDROCHLORIDE
     Indication: OESOPHAGEAL ADENOCARCINOMA
     Dosage: 50 MG/M2, ON DAY 1, EVERY 21 DAYS
     Route: 042

REACTIONS (1)
  - Neutropenic infection [Fatal]
